FAERS Safety Report 13983390 (Version 3)
Quarter: 2017Q4

REPORT INFORMATION
  Report Type: Report from Study
  Country: None (occurrence: AU)
  Receive Date: 20170918
  Receipt Date: 20171004
  Transmission Date: 20180321
  Serious: Yes (Hospitalization, Other)
  Sender: FDA-Public Use
  Company Number: AU-ABBVIE-17P-008-2103908-00

PATIENT
  Age: 37 Year
  Sex: Male

DRUGS (16)
  1. HALOPERIDOL. [Concomitant]
     Active Substance: HALOPERIDOL
     Indication: PRODUCT USED FOR UNKNOWN INDICATION
     Dosage: 5 MG, BID
  2. VALPROIC ACID. [Suspect]
     Active Substance: VALPROIC ACID
     Indication: PROPHYLAXIS
     Dosage: 800 MG, PM
     Route: 065
     Dates: start: 201110, end: 20120328
  3. CLOZAPINE. [Suspect]
     Active Substance: CLOZAPINE
     Dosage: 425 MG, PM
     Route: 048
     Dates: start: 201110, end: 20120328
  4. HALOPERIDOL. [Concomitant]
     Active Substance: HALOPERIDOL
     Dosage: 10 MG, PM
  5. CLOZAPINE. [Suspect]
     Active Substance: CLOZAPINE
     Dosage: 500 MG, NOCTE
     Route: 048
     Dates: start: 201108, end: 20120328
  6. CLOZAPINE. [Suspect]
     Active Substance: CLOZAPINE
     Dosage: UNK
     Route: 048
     Dates: start: 20170816, end: 20170907
  7. LITHIUM. [Suspect]
     Active Substance: LITHIUM
     Dosage: 500 MG, PM
     Route: 065
     Dates: start: 201108
  8. GEMFIBROZIL. [Concomitant]
     Active Substance: GEMFIBROZIL
     Indication: PRODUCT USED FOR UNKNOWN INDICATION
     Dosage: 600 MG, BID
  9. ATORVASTATIN [Concomitant]
     Active Substance: ATORVASTATIN
     Indication: PRODUCT USED FOR UNKNOWN INDICATION
     Dosage: 20 MG, PM
  10. CLOZAPINE. [Suspect]
     Active Substance: CLOZAPINE
     Dosage: 350 MG
     Route: 048
     Dates: start: 2011
  11. QUETIAPINE XR [Concomitant]
     Active Substance: QUETIAPINE
     Indication: PRODUCT USED FOR UNKNOWN INDICATION
     Dosage: UNK, NOCTE
  12. LITHIUM. [Suspect]
     Active Substance: LITHIUM
     Indication: PRODUCT USED FOR UNKNOWN INDICATION
     Dosage: 1 G, UNK
     Route: 065
     Dates: start: 2011
  13. LITHIUM. [Suspect]
     Active Substance: LITHIUM
     Dosage: 250 MG, AM
     Route: 065
     Dates: start: 201108
  14. THYROXINE [Concomitant]
     Active Substance: LEVOTHYROXINE
     Indication: PRODUCT USED FOR UNKNOWN INDICATION
     Dosage: 250 ?G, AM
  15. CLOZAPINE. [Suspect]
     Active Substance: CLOZAPINE
     Indication: SCHIZOPHRENIA
     Dosage: 550 MG
     Route: 048
     Dates: start: 20100225
  16. QUETIAPINE. [Concomitant]
     Active Substance: QUETIAPINE
     Indication: PRODUCT USED FOR UNKNOWN INDICATION
     Dosage: 1 G, PM

REACTIONS (10)
  - Viral infection [Unknown]
  - Haemoglobin decreased [Not Recovered/Not Resolved]
  - Antipsychotic drug level increased [Not Recovered/Not Resolved]
  - Malaise [Unknown]
  - Schizophrenia [Unknown]
  - Lymphocyte count increased [Unknown]
  - White blood cell count decreased [Recovered/Resolved]
  - White blood cell count increased [Unknown]
  - Neutropenia [Recovered/Resolved]
  - Haematocrit decreased [Not Recovered/Not Resolved]

NARRATIVE: CASE EVENT DATE: 2011
